FAERS Safety Report 12360966 (Version 1)
Quarter: 2016Q2

REPORT INFORMATION
  Report Type: Report from Study
  Country: US (occurrence: US)
  Receive Date: 20160512
  Receipt Date: 20160512
  Transmission Date: 20160815
  Serious: Yes (Death, Hospitalization)
  Sender: FDA-Public Use
  Company Number: US-BIOGEN-2015BI061438

PATIENT
  Age: 68 Year
  Sex: Female
  Weight: 73.09 kg

DRUGS (21)
  1. TYSABRI [Suspect]
     Active Substance: NATALIZUMAB
     Indication: MULTIPLE SCLEROSIS
     Route: 042
     Dates: start: 20070905, end: 20130625
  2. DULCOLAX NOS [Concomitant]
     Active Substance: BISACODYL OR DOCUSATE SODIUM
     Route: 054
  3. VALIUM [Concomitant]
     Active Substance: DIAZEPAM
     Route: 048
  4. TECFIDERA [Suspect]
     Active Substance: DIMETHYL FUMARATE
     Indication: MULTIPLE SCLEROSIS
     Route: 065
     Dates: start: 20130826
  5. B COMPLEX VITAMIN [Concomitant]
     Route: 048
  6. TECFIDERA [Suspect]
     Active Substance: DIMETHYL FUMARATE
     Route: 065
     Dates: start: 20140205, end: 20140216
  7. OSCAL [Concomitant]
     Active Substance: CALCIUM CARBONATE
     Route: 048
  8. LASIX [Concomitant]
     Active Substance: FUROSEMIDE
     Route: 048
  9. LEVAQUIN [Concomitant]
     Active Substance: LEVOFLOXACIN
     Route: 042
  10. EFFEXOR [Concomitant]
     Active Substance: VENLAFAXINE HYDROCHLORIDE
     Route: 048
  11. LODINE [Concomitant]
     Active Substance: ETODOLAC
     Route: 048
  12. MS CONTIN [Concomitant]
     Active Substance: MORPHINE SULFATE
     Route: 048
  13. GLYCOLAX [Concomitant]
     Active Substance: POLYETHYLENE GLYCOL 3350
     Indication: CONSTIPATION
     Route: 048
  14. TYSABRI [Suspect]
     Active Substance: NATALIZUMAB
     Route: 042
     Dates: start: 20140415, end: 201411
  15. TYSABRI [Suspect]
     Active Substance: NATALIZUMAB
     Route: 042
  16. LIORESAL [Concomitant]
     Active Substance: BACLOFEN
     Route: 048
  17. ATROVENT [Concomitant]
     Active Substance: IPRATROPIUM BROMIDE
     Route: 045
  18. COMPAZINE [Concomitant]
     Active Substance: PROCHLORPERAZINE MALEATE
     Route: 048
  19. FOSAMAX [Concomitant]
     Active Substance: ALENDRONATE SODIUM
     Route: 048
  20. TYSABRI [Suspect]
     Active Substance: NATALIZUMAB
     Route: 042
     Dates: start: 201411, end: 20150304
  21. CHOLECALCIFEROL [Concomitant]
     Active Substance: CHOLECALCIFEROL
     Route: 048

REACTIONS (4)
  - Multiple sclerosis relapse [Unknown]
  - Prescribed underdose [Recovered/Resolved]
  - Urinary tract infection [Unknown]
  - Lung adenocarcinoma stage IV [Fatal]

NARRATIVE: CASE EVENT DATE: 201411
